FAERS Safety Report 6838887-5 (Version None)
Quarter: 2010Q3

REPORT INFORMATION
  Report Type: 
  Country: None (occurrence: None)
  Receive Date: 20100713
  Receipt Date: 20070821
  Transmission Date: 20110219
  Serious: No
  Sender: FDA-Public Use
  Company Number: US-PFIZER INC-2007049695

PATIENT
  Sex: Female
  Weight: 116 kg

DRUGS (4)
  1. CHANTIX [Suspect]
     Indication: SMOKING CESSATION THERAPY
     Route: 048
     Dates: start: 20070612
  2. DOXYCYCLINE [Interacting]
     Indication: FURUNCLE
     Dates: start: 20070612
  3. IBUPROFEN [Interacting]
     Indication: DYSMENORRHOEA
  4. KEFLEX [Interacting]
     Indication: FURUNCLE
     Dates: start: 20070612

REACTIONS (2)
  - DIZZINESS [None]
  - DRUG INTERACTION [None]
